FAERS Safety Report 5075565-X (Version None)
Quarter: 2006Q3

REPORT INFORMATION
  Report Type: 
  Country: None (occurrence: None)
  Receive Date: 20060809
  Receipt Date: 20060801
  Transmission Date: 20061208
  Serious: Yes (Hospitalization)
  Sender: FDA-Public Use
  Company Number: BR-ROCHE-457813

PATIENT
  Age: 15 Year
  Sex: Male

DRUGS (2)
  1. ROACUTAN [Suspect]
     Indication: ACNE
     Dosage: STRENGTHS REPORTED AS 10+20MG/CAP.
     Route: 048
     Dates: start: 20060415, end: 20060615
  2. ROACUTAN [Suspect]
     Route: 048
     Dates: start: 20060615, end: 20060715

REACTIONS (2)
  - BONE PAIN [None]
  - LYMPHOCYTIC LEUKAEMIA [None]
